FAERS Safety Report 16386384 (Version 1)
Quarter: 2019Q2

REPORT INFORMATION
  Report Type: Spontaneous
  Country: CH (occurrence: CH)
  Receive Date: 20190603
  Receipt Date: 20190603
  Transmission Date: 20190711
  Serious: Yes (Other)
  Sender: FDA-Public Use
  Company Number: CH-BAXTER-2019BAX010598

PATIENT
  Sex: Male

DRUGS (14)
  1. CELLCEPT [Suspect]
     Active Substance: MYCOPHENOLATE MOFETIL\MYCOPHENOLATE MOFETIL HYDROCHLORIDE
     Indication: OPTIC NEURITIS
     Route: 065
  2. METHOTREXATE. [Suspect]
     Active Substance: METHOTREXATE
     Indication: DISEASE RECURRENCE
  3. ARAVA [Suspect]
     Active Substance: LEFLUNOMIDE
     Indication: OPTIC NEURITIS
     Route: 065
  4. ENDOXAN 1 G. TROCKENSUBSTANZ ZUR INTRAVEN?SEN INFUSION [Suspect]
     Active Substance: CYCLOPHOSPHAMIDE
     Indication: DISEASE RECURRENCE
  5. SANDIMMUN NEORAL [Suspect]
     Active Substance: CYCLOSPORINE
     Indication: DISEASE RECURRENCE
  6. HUMIRA [Suspect]
     Active Substance: ADALIMUMAB
     Indication: OPTIC NEURITIS
     Route: 065
  7. ARAVA [Suspect]
     Active Substance: LEFLUNOMIDE
     Indication: DISEASE RECURRENCE
  8. SANDIMMUN NEORAL [Suspect]
     Active Substance: CYCLOSPORINE
     Indication: OPTIC NEURITIS
     Route: 065
  9. ENDOXAN 1 G. TROCKENSUBSTANZ ZUR INTRAVEN?SEN INFUSION [Suspect]
     Active Substance: CYCLOPHOSPHAMIDE
     Indication: OPTIC NEURITIS
     Route: 065
  10. HUMIRA [Suspect]
     Active Substance: ADALIMUMAB
     Indication: DISEASE RECURRENCE
  11. METHOTREXATE. [Suspect]
     Active Substance: METHOTREXATE
     Indication: OPTIC NEURITIS
     Route: 065
  12. IMUREK [Suspect]
     Active Substance: AZATHIOPRINE
     Indication: OPTIC NEURITIS
     Route: 065
  13. IMUREK [Suspect]
     Active Substance: AZATHIOPRINE
     Indication: DISEASE RECURRENCE
  14. CELLCEPT [Suspect]
     Active Substance: MYCOPHENOLATE MOFETIL\MYCOPHENOLATE MOFETIL HYDROCHLORIDE
     Indication: DISEASE RECURRENCE

REACTIONS (4)
  - Drug ineffective [Unknown]
  - Disease recurrence [Unknown]
  - Adverse drug reaction [Unknown]
  - Optic neuritis [Unknown]
